FAERS Safety Report 17265417 (Version 1)
Quarter: 2020Q1

REPORT INFORMATION
  Report Type: Spontaneous
  Country: US (occurrence: US)
  Receive Date: 20200114
  Receipt Date: 20200114
  Transmission Date: 20200409
  Serious: Yes (Other)
  Sender: FDA-Public Use
  Company Number: US-ROCHE-2518857

PATIENT
  Age: 37 Year
  Sex: Female

DRUGS (13)
  1. DOXORUBICIN HYDROCHLORIDE. [Suspect]
     Active Substance: DOXORUBICIN HYDROCHLORIDE
     Indication: B-CELL LYMPHOMA
     Route: 065
  2. RITUXIMAB. [Suspect]
     Active Substance: RITUXIMAB
     Indication: B-CELL LYMPHOMA
     Route: 042
     Dates: start: 201601, end: 201606
  3. RITUXIMAB. [Suspect]
     Active Substance: RITUXIMAB
     Route: 042
     Dates: start: 201704, end: 201707
  4. MYCOPHENOLATE MOFETIL. [Suspect]
     Active Substance: MYCOPHENOLATE MOFETIL
     Indication: PROPHYLAXIS AGAINST TRANSPLANT REJECTION
     Route: 065
  5. CHLORAMBUCIL [Suspect]
     Active Substance: CHLORAMBUCIL
     Indication: B-CELL LYMPHOMA
     Route: 065
     Dates: start: 201601, end: 201606
  6. FLUDARABINE [Suspect]
     Active Substance: FLUDARABINE PHOSPHATE
     Indication: PROPHYLAXIS AGAINST TRANSPLANT REJECTION
     Route: 065
     Dates: start: 201704, end: 201707
  7. MITOXANTRONE [Suspect]
     Active Substance: MITOXANTRONE HYDROCHLORIDE
     Indication: B-CELL LYMPHOMA
     Route: 065
     Dates: start: 201704, end: 201707
  8. TACROLIMUS. [Suspect]
     Active Substance: TACROLIMUS
     Indication: PROPHYLAXIS AGAINST TRANSPLANT REJECTION
     Route: 065
  9. DEXAMETHASONE. [Suspect]
     Active Substance: DEXAMETHASONE
     Indication: B-CELL LYMPHOMA
     Route: 065
  10. VINCRISTINE [Suspect]
     Active Substance: VINCRISTINE
     Indication: B-CELL LYMPHOMA
     Route: 065
  11. FOSFOMYCIN [Concomitant]
     Active Substance: FOSFOMYCIN
  12. CYCLOPHOSPHAMIDE. [Suspect]
     Active Substance: CYCLOPHOSPHAMIDE
     Indication: PROPHYLAXIS AGAINST TRANSPLANT REJECTION
     Route: 065
  13. PREDNISOLONE. [Suspect]
     Active Substance: PREDNISOLONE
     Indication: B-CELL LYMPHOMA
     Route: 065

REACTIONS (7)
  - Urinary tract infection [Unknown]
  - Respiratory tract infection [Unknown]
  - Rectal prolapse [Unknown]
  - Acute graft versus host disease [Unknown]
  - Febrile neutropenia [Unknown]
  - Bronchopulmonary aspergillosis [Unknown]
  - Cytokine release syndrome [Unknown]
